FAERS Safety Report 10772863 (Version 2)
Quarter: 2016Q1

REPORT INFORMATION
  Report Type: Other
  Country: US (occurrence: US)
  Receive Date: 20150207
  Receipt Date: 20160219
  Transmission Date: 20160525
  Serious: No
  Sender: FDA-Public Use
  Company Number: US-ACORDA-ACO_106203_2014

PATIENT
  Age: 49 Year
  Sex: Female
  Weight: 89.8 kg

DRUGS (16)
  1. AUBAGIO [Suspect]
     Active Substance: TERIFLUNOMIDE
     Dosage: 14 MG, QD
     Route: 048
     Dates: start: 201407
  2. POTASSIUM [Concomitant]
     Active Substance: POTASSIUM
     Indication: PRODUCT USED FOR UNKNOWN INDICATION
     Dosage: UNK
     Route: 065
  3. NEURONTIN [Concomitant]
     Active Substance: GABAPENTIN
     Dosage: 600 MG, TID
     Route: 048
  4. AMARYL [Suspect]
     Active Substance: GLIMEPIRIDE
     Dosage: 4 MG, UNK
     Route: 048
  5. AUBAGIO [Suspect]
     Active Substance: TERIFLUNOMIDE
     Indication: PRODUCT USED FOR UNKNOWN INDICATION
     Dosage: 7 MG, QD
     Route: 065
  6. GLUCOPHAGE [Suspect]
     Active Substance: METFORMIN HYDROCHLORIDE
     Indication: DIABETES MELLITUS
     Dosage: 850 MG, BID
     Route: 065
  7. MAGNESIUM OXIDE. [Concomitant]
     Active Substance: MAGNESIUM OXIDE
     Indication: PRODUCT USED FOR UNKNOWN INDICATION
     Dosage: UNK
  8. ZANAFLEX [Suspect]
     Active Substance: TIZANIDINE HYDROCHLORIDE
     Indication: PRODUCT USED FOR UNKNOWN INDICATION
     Dosage: 4 MG, QID
     Route: 065
  9. AMARYL [Suspect]
     Active Substance: GLIMEPIRIDE
     Indication: DIABETES MELLITUS
     Dosage: 4 MG, UNK
     Route: 048
  10. AMARYL [Suspect]
     Active Substance: GLIMEPIRIDE
     Dosage: 2 MG, QD
     Route: 048
  11. FERROUS SULFATE [Concomitant]
     Active Substance: FERROUS SULFATE\FERROUS SULFATE, DRIED
     Indication: PRODUCT USED FOR UNKNOWN INDICATION
  12. AMPYRA [Suspect]
     Active Substance: DALFAMPRIDINE
     Indication: GAIT DISTURBANCE
     Dosage: 10 MG, BID
     Route: 048
     Dates: start: 20150217
  13. KLOR-CON [Concomitant]
     Active Substance: POTASSIUM CHLORIDE
     Indication: PRODUCT USED FOR UNKNOWN INDICATION
     Dosage: 20 MEQ, QD
     Route: 048
  14. ALDACTONE [Concomitant]
     Active Substance: SPIRONOLACTONE
     Indication: PRODUCT USED FOR UNKNOWN INDICATION
     Dosage: 25 MG, QD
     Route: 048
  15. AMPYRA [Suspect]
     Active Substance: DALFAMPRIDINE
     Indication: MULTIPLE SCLEROSIS
     Dosage: 10 MG, Q 12 HRS
     Route: 048
     Dates: start: 201406, end: 20141230
  16. NEURONTIN [Concomitant]
     Active Substance: GABAPENTIN
     Indication: PRODUCT USED FOR UNKNOWN INDICATION
     Dosage: 300 MG, TID
     Route: 065

REACTIONS (11)
  - Blood glucose decreased [Recovered/Resolved]
  - Therapy cessation [Recovered/Resolved]
  - Therapeutic response unexpected [Not Recovered/Not Resolved]
  - Blood magnesium decreased [Unknown]
  - Sleep apnoea syndrome [Not Recovered/Not Resolved]
  - Insomnia [Unknown]
  - Vitamin D decreased [Recovered/Resolved]
  - Blood glucose increased [Recovered/Resolved]
  - Dysgeusia [Unknown]
  - Gait disturbance [Unknown]
  - Asthenia [Unknown]

NARRATIVE: CASE EVENT DATE: 2014
